FAERS Safety Report 17999117 (Version 1)
Quarter: 2020Q3

REPORT INFORMATION
  Report Type: Spontaneous
  Country: US (occurrence: US)
  Receive Date: 20200708
  Receipt Date: 20200708
  Transmission Date: 20201103
  Serious: Yes (Life-Threatening, Hospitalization)
  Sender: FDA-Public Use
  Company Number: None

PATIENT
  Age: 75 Year
  Sex: Male

DRUGS (3)
  1. SACUBITRIL/VALSARTAN (SACUBITRIL 97MG/VALSARTAN 103MG TAB) [Suspect]
     Active Substance: SACUBITRIL\VALSARTAN
     Indication: CARDIAC FAILURE CONGESTIVE
     Route: 048
     Dates: start: 20200609
  2. CARVEDILOL (CARVEDILOL 25MG TAB) [Suspect]
     Active Substance: CARVEDILOL
     Indication: HYPERTENSION
     Route: 048
     Dates: start: 20200615
  3. CARVEDILOL (CARVEDILOL 25MG TAB) [Suspect]
     Active Substance: CARVEDILOL
     Indication: CARDIAC FAILURE CONGESTIVE
     Route: 048
     Dates: start: 20200615

REACTIONS (16)
  - Gastrooesophageal reflux disease [None]
  - Sedation [None]
  - Acute kidney injury [None]
  - Dyspnoea exertional [None]
  - Diarrhoea [None]
  - Wheezing [None]
  - Fatigue [None]
  - Hypovolaemia [None]
  - Asthenia [None]
  - Syncope [None]
  - Hypophagia [None]
  - Productive cough [None]
  - Blood creatinine increased [None]
  - Blood sodium decreased [None]
  - Hypotension [None]
  - Dizziness [None]

NARRATIVE: CASE EVENT DATE: 20200624
